FAERS Safety Report 13929326 (Version 1)
Quarter: 2017Q3

REPORT INFORMATION
  Report Type: Spontaneous
  Country: JP (occurrence: JP)
  Receive Date: 20170901
  Receipt Date: 20170901
  Transmission Date: 20171127
  Serious: Yes (Hospitalization)
  Sender: FDA-Public Use
  Company Number: JP-SHIONOGI, INC-2017000786

PATIENT
  Age: 63 Year
  Sex: Female

DRUGS (18)
  1. SYMPROIC [Suspect]
     Active Substance: NALDEMEDINE
     Dosage: 0.2 MG, QD
     Route: 048
  2. POLAPREZINC [Concomitant]
     Active Substance: POLAPREZINC
     Dosage: 75 MG, BID
     Route: 048
  3. NOVAMIN                            /00013301/ [Concomitant]
     Active Substance: PROCHLORPERAZINE
     Indication: NAUSEA
     Dosage: 5 MG, PRN
     Route: 048
     Dates: start: 20170715, end: 20170715
  4. GOSHAJINKIGAN [Concomitant]
     Active Substance: HERBALS
     Dosage: 2.5 G, TID
     Route: 048
     Dates: end: 20170724
  5. OXYCONTIN [Concomitant]
     Active Substance: OXYCODONE HYDROCHLORIDE
     Indication: CANCER PAIN
     Dosage: 15 MG, BID
     Route: 048
     Dates: end: 20170714
  6. POLAPREZINC [Concomitant]
     Active Substance: POLAPREZINC
     Dosage: 75 MG, QD
     Route: 048
     Dates: start: 20170730, end: 20170730
  7. OXINORM                            /00045603/ [Concomitant]
     Active Substance: OXYCODONE HYDROCHLORIDE
     Dosage: 10 MG, PRN
     Route: 048
     Dates: start: 20170730, end: 20170730
  8. CYMBALTA [Suspect]
     Active Substance: DULOXETINE HYDROCHLORIDE
     Indication: BACK PAIN
     Dosage: 20 MG, QD
     Route: 048
     Dates: start: 20170724, end: 20170730
  9. OXYCONTIN [Concomitant]
     Active Substance: OXYCODONE HYDROCHLORIDE
     Dosage: 70 MG, QD
     Route: 048
     Dates: start: 20170815
  10. MAGNESIUM OXIDE. [Concomitant]
     Active Substance: MAGNESIUM OXIDE
     Dosage: 250 MG, BID
     Route: 048
     Dates: end: 20170714
  11. OXINORM                            /00045603/ [Concomitant]
     Active Substance: OXYCODONE HYDROCHLORIDE
     Dosage: 10 MG, PRN
     Route: 048
     Dates: start: 20170731, end: 20170731
  12. OXYCONTIN [Concomitant]
     Active Substance: OXYCODONE HYDROCHLORIDE
     Dosage: 25 MG, QD
     Route: 048
     Dates: start: 20170730, end: 20170730
  13. HOCHUEKKITO                        /07973001/ [Concomitant]
     Active Substance: HERBALS
     Dosage: 2.5 G, TID
     Route: 048
     Dates: end: 20170724
  14. OXYCONTIN [Concomitant]
     Active Substance: OXYCODONE HYDROCHLORIDE
     Dosage: 25 MG, BID
     Route: 048
     Dates: start: 20170715, end: 20170730
  15. OXYCONTIN [Concomitant]
     Active Substance: OXYCODONE HYDROCHLORIDE
     Dosage: 25 MG, BID
     Route: 048
     Dates: start: 20170731
  16. OXINORM                            /00045603/ [Concomitant]
     Active Substance: OXYCODONE HYDROCHLORIDE
     Indication: CANCER PAIN
     Dosage: 5 MG, PRN
     Route: 048
     Dates: start: 20170715, end: 20170715
  17. OXINORM                            /00045603/ [Concomitant]
     Active Substance: OXYCODONE HYDROCHLORIDE
     Dosage: 10 MG, PRN
     Route: 048
     Dates: start: 20170724, end: 20170724
  18. LIMAPROST ALFADEX [Concomitant]
     Active Substance: LIMAPROST
     Dosage: 1 DF, TID
     Route: 048
     Dates: start: 20170715, end: 20170724

REACTIONS (1)
  - Malaise [Recovered/Resolved]

NARRATIVE: CASE EVENT DATE: 20170730
